FAERS Safety Report 4667515-2 (Version None)
Quarter: 2005Q2

REPORT INFORMATION
  Report Type: 
  Country: None (occurrence: None)
  Receive Date: 20050520
  Receipt Date: 20041114
  Transmission Date: 20051028
  Serious: Yes (Other)
  Sender: FDA-Public Use
  Company Number: PHEH2004US12289

PATIENT
  Age: 36 Year
  Sex: Female
  Weight: 84 kg

DRUGS (4)
  1. TAXOTERE [Concomitant]
     Dates: start: 20020401, end: 20030401
  2. ZOMETA [Suspect]
     Indication: METASTASES TO BONE
     Dosage: 4 MG, QMO
     Route: 042
     Dates: start: 20030430, end: 20040414
  3. HERCEPTIN [Concomitant]
     Dosage: 2MG/M2/WEEK
     Dates: start: 20030401, end: 20040901
  4. XELODA [Concomitant]
     Dates: start: 20030401, end: 20031101

REACTIONS (3)
  - ACTINOMYCOSIS [None]
  - OSTEOMYELITIS [None]
  - OSTEONECROSIS [None]
